FAERS Safety Report 20102998 (Version 1)
Quarter: 2021Q4

REPORT INFORMATION
  Report Type: Spontaneous
  Country: US (occurrence: None)
  Receive Date: 20211122
  Receipt Date: 20211122
  Transmission Date: 20220303
  Serious: No
  Sender: FDA-Public Use
  Company Number: None

PATIENT

DRUGS (2)
  1. TACROLIMUS [Suspect]
     Active Substance: TACROLIMUS
     Route: 048
  2. DEVICE [Suspect]
     Active Substance: DEVICE

REACTIONS (5)
  - Underdose [None]
  - Urine output decreased [None]
  - Blood creatinine increased [None]
  - Device use issue [None]
  - Device delivery system issue [None]
